FAERS Safety Report 12591545 (Version 3)
Quarter: 2017Q3

REPORT INFORMATION
  Report Type: Spontaneous
  Country: FR (occurrence: FR)
  Receive Date: 20160726
  Receipt Date: 20170816
  Transmission Date: 20171127
  Serious: Yes (Other)
  Sender: FDA-Public Use
  Company Number: FR-009507513-1510FRA008246

PATIENT
  Age: 50 Year
  Sex: Female

DRUGS (5)
  1. LISINOPRIL. [Suspect]
     Active Substance: LISINOPRIL
     Route: 048
  2. FUROSEMIDE. [Concomitant]
     Active Substance: FUROSEMIDE
  3. BUFLOMEDIL [Concomitant]
     Active Substance: BUFLOMEDIL
  4. ROSUVASTATIN. [Concomitant]
     Active Substance: ROSUVASTATIN
  5. CLOPIDOGREL [Concomitant]
     Active Substance: CLOPIDOGREL BISULFATE

REACTIONS (2)
  - Pleural effusion [Recovered/Resolved]
  - Eosinophilia [Recovered/Resolved]
